FAERS Safety Report 4743420-8 (Version None)
Quarter: 2005Q3

REPORT INFORMATION
  Report Type: 
  Country: None (occurrence: None)
  Receive Date: 20050812
  Receipt Date: 20050804
  Transmission Date: 20060218
  Serious: Yes (Hospitalization)
  Sender: FDA-Public Use
  Company Number: JP-BOEHRINGER INGELHEIM PHARMACEUTICALS, INC.-2005-BP-13403NB

PATIENT
  Age: 7 Decade
  Sex: Female

DRUGS (4)
  1. MOBIC [Suspect]
     Indication: BACK PAIN
     Route: 048
     Dates: start: 20050601, end: 20050710
  2. DIOVAN [Concomitant]
     Route: 048
  3. NORVASC [Concomitant]
     Route: 048
  4. MEVALOTIN [Concomitant]
     Route: 048

REACTIONS (1)
  - HAEMOLYTIC ANAEMIA [None]
